FAERS Safety Report 6820335-2 (Version None)
Quarter: 2010Q3

REPORT INFORMATION
  Report Type: 
  Country: None (occurrence: None)
  Receive Date: 20100707
  Receipt Date: 20100705
  Transmission Date: 20110219
  Serious: Yes (Death, Hospitalization)
  Sender: FDA-Public Use
  Company Number: PHHO2009GB16278

PATIENT
  Sex: Female
  Weight: 59.1 kg

DRUGS (1)
  1. AFINITOR [Suspect]
     Indication: METASTATIC RENAL CELL CARCINOMA
     Dosage: 10 MG, QD
     Route: 048
     Dates: start: 20091016

REACTIONS (3)
  - CARDIO-RESPIRATORY ARREST [None]
  - INTESTINAL PERFORATION [None]
  - PNEUMONIA [None]
